FAERS Safety Report 6490431-0 (Version None)
Quarter: 2009Q4

REPORT INFORMATION
  Report Type: 
  Country: None (occurrence: None)
  Receive Date: 20091210
  Receipt Date: 20091210
  Transmission Date: 20100525
  Serious: Yes (Other)
  Sender: FDA-Public Use
  Company Number: None

PATIENT
  Age: 49 Year
  Sex: Female
  Weight: 94.5296 kg

DRUGS (3)
  1. EMEND [Suspect]
     Indication: NAUSEA
     Dosage: 115MG ONCE IV
     Route: 042
     Dates: start: 20091204, end: 20091204
  2. EMEND [Suspect]
     Indication: PROPHYLAXIS OF NAUSEA AND VOMITING
     Dosage: 115MG ONCE IV
     Route: 042
     Dates: start: 20091204, end: 20091204
  3. EMEND [Suspect]
     Indication: VOMITING
     Dosage: 115MG ONCE IV
     Route: 042
     Dates: start: 20091204, end: 20091204

REACTIONS (1)
  - DRUG HYPERSENSITIVITY [None]
